FAERS Safety Report 9616609 (Version 2)
Quarter: 2013Q4

REPORT INFORMATION
  Report Type: Spontaneous
  Country: US (occurrence: US)
  Receive Date: 20131011
  Receipt Date: 20131029
  Transmission Date: 20140711
  Serious: Yes (Death, Other)
  Sender: FDA-Public Use
  Company Number: US-MERCK-1310USA004766

PATIENT
  Age: 87 Year
  Sex: Female

DRUGS (1)
  1. JANUVIA [Suspect]
     Indication: DIABETES MELLITUS
     Dosage: UNK
     Route: 048

REACTIONS (1)
  - Pancreatic carcinoma [Fatal]
